FAERS Safety Report 20025571 (Version 8)
Quarter: 2022Q4

REPORT INFORMATION
  Report Type: Report from Study
  Country: CN (occurrence: None)
  Receive Date: 20211102
  Receipt Date: 20221017
  Transmission Date: 20230113
  Serious: Yes (Hospitalization)
  Sender: FDA-Public Use
  Company Number: CN-ROCHE-2943690

PATIENT
  Age: 46 Year
  Sex: Female
  Weight: 54 kg

DRUGS (28)
  1. TRASTUZUMAB [Suspect]
     Active Substance: TRASTUZUMAB
     Indication: HER2 positive breast cancer
     Dosage: ON 28/SEP/2021, PATIENT RECEIVED MOST RECENT DOSE OF TRASTUZUMAB (420 MG) PRIOR TO AE ONSET
     Route: 041
     Dates: start: 20210902
  2. PERTUZUMAB [Suspect]
     Active Substance: PERTUZUMAB
     Indication: HER2 positive breast cancer
     Dosage: ON 28/SEP/2021, PATIENT RECEIVED MOST RECENT DOSE OF PERTUZUMAB (420 MG) PRIOR TO AE ONSET
     Route: 042
     Dates: start: 20210902
  3. DOXORUBICIN [Suspect]
     Active Substance: DOXORUBICIN
     Indication: HER2 positive breast cancer
     Dosage: ON 09/AUG/2021, PATIENT RECEIVED MOST RECENT DOSE OF DOXORUBICIN (90 MG) PRIOR TO AE ONSET
     Route: 042
     Dates: start: 20210602
  4. CYCLOPHOSPHAMIDE [Suspect]
     Active Substance: CYCLOPHOSPHAMIDE
     Indication: HER2 positive breast cancer
     Dosage: ON 09/AUG/2021, PATIENT RECEIVED MOST RECENT DOSE OF CYCLOPHOSPHAMIDE (900 MG) PRIOR TO AE ONSET
     Route: 042
     Dates: start: 20210602
  5. DOCETAXEL [Suspect]
     Active Substance: DOCETAXEL
     Indication: HER2 positive breast cancer
     Dosage: ON 28/SEP/2021, PATIENT RECEIVED MOST RECENT DOSE OF DOCETAXEL (112.5 MG) PRIOR TO AE ONSET
     Route: 042
     Dates: start: 20210902
  6. HERBALS\DIAMMONIUM GLYCYRRHIZINATE [Concomitant]
     Active Substance: HERBALS\DIAMMONIUM GLYCYRRHIZINATE
     Route: 048
     Dates: start: 20210715, end: 20210718
  7. HERBALS\DIAMMONIUM GLYCYRRHIZINATE [Concomitant]
     Active Substance: HERBALS\DIAMMONIUM GLYCYRRHIZINATE
     Route: 048
     Dates: start: 20210929, end: 20211114
  8. BICYCLOL [Concomitant]
     Active Substance: BICYCLOL
     Route: 048
     Dates: start: 20210805, end: 20210812
  9. BICYCLOL [Concomitant]
     Active Substance: BICYCLOL
     Route: 048
     Dates: start: 20211026, end: 20211101
  10. PALONOSETRON HYDROCHLORIDE [Concomitant]
     Active Substance: PALONOSETRON HYDROCHLORIDE
     Route: 042
     Dates: start: 20210928, end: 20210928
  11. PALONOSETRON HYDROCHLORIDE [Concomitant]
     Active Substance: PALONOSETRON HYDROCHLORIDE
     Route: 042
     Dates: start: 20210716, end: 20210716
  12. PALONOSETRON HYDROCHLORIDE [Concomitant]
     Active Substance: PALONOSETRON HYDROCHLORIDE
     Dosage: STOP VOMITING
     Route: 042
     Dates: start: 20210809, end: 20210812
  13. PALONOSETRON HYDROCHLORIDE [Concomitant]
     Active Substance: PALONOSETRON HYDROCHLORIDE
     Route: 042
     Dates: start: 20210902, end: 20210903
  14. PALONOSETRON HYDROCHLORIDE [Concomitant]
     Active Substance: PALONOSETRON HYDROCHLORIDE
     Route: 042
     Dates: start: 20211025, end: 20211025
  15. DEXAMETHASONE [Concomitant]
     Active Substance: DEXAMETHASONE
     Route: 048
     Dates: start: 20210927
  16. DEXAMETHASONE [Concomitant]
     Active Substance: DEXAMETHASONE
     Route: 048
     Dates: start: 20210901, end: 20210903
  17. DEXAMETHASONE [Concomitant]
     Active Substance: DEXAMETHASONE
     Route: 048
     Dates: start: 20211116, end: 20211118
  18. DEXAMETHASONE [Concomitant]
     Active Substance: DEXAMETHASONE
     Route: 048
     Dates: start: 20210926, end: 20210928
  19. DEXAMETHASONE [Concomitant]
     Active Substance: DEXAMETHASONE
     Route: 048
     Dates: start: 20211024, end: 20211026
  20. DEXAMETHASONE SODIUM PHOSPHATE [Concomitant]
     Active Substance: DEXAMETHASONE SODIUM PHOSPHATE
     Route: 042
     Dates: start: 20210624, end: 20210624
  21. DEXAMETHASONE SODIUM PHOSPHATE [Concomitant]
     Active Substance: DEXAMETHASONE SODIUM PHOSPHATE
     Route: 042
     Dates: start: 20210715, end: 20210715
  22. DEXAMETHASONE SODIUM PHOSPHATE [Concomitant]
     Active Substance: DEXAMETHASONE SODIUM PHOSPHATE
     Dosage: STOP VOMITING
     Route: 042
     Dates: start: 20210716, end: 20210716
  23. DEXAMETHASONE SODIUM PHOSPHATE [Concomitant]
     Active Substance: DEXAMETHASONE SODIUM PHOSPHATE
     Dosage: STOP VOMITING
     Route: 042
     Dates: start: 20210809, end: 20210809
  24. TROPISETRON HYDROCHLORIDE [Concomitant]
     Active Substance: TROPISETRON HYDROCHLORIDE
     Route: 042
     Dates: start: 20210624, end: 20210624
  25. TROPISETRON HYDROCHLORIDE [Concomitant]
     Active Substance: TROPISETRON HYDROCHLORIDE
     Route: 042
     Dates: start: 20210625, end: 20210627
  26. TROPISETRON HYDROCHLORIDE [Concomitant]
     Active Substance: TROPISETRON HYDROCHLORIDE
     Route: 042
     Dates: start: 20210715, end: 20210715
  27. TROPISETRON HYDROCHLORIDE [Concomitant]
     Active Substance: TROPISETRON HYDROCHLORIDE
     Dosage: TREATMENT OF NAUSEA
     Route: 042
     Dates: start: 20210716, end: 20210718
  28. HUMAN GRANULOCYTE STIMULATING FACTOR (UNK INGREDIENTS) [Concomitant]
     Dosage: 150 UG (MEDICATION INDICATION LITERS OF BLOOD TREATMENT)
     Route: 058
     Dates: start: 20210830, end: 20210831

REACTIONS (3)
  - Alanine aminotransferase increased [Recovered/Resolved]
  - Gamma-glutamyltransferase increased [Recovered/Resolved]
  - Aspartate aminotransferase increased [Recovered/Resolved]

NARRATIVE: CASE EVENT DATE: 20210715
